FAERS Safety Report 15030344 (Version 1)
Quarter: 2018Q2

REPORT INFORMATION
  Report Type: Spontaneous
  Country: DE (occurrence: DE)
  Receive Date: 20180619
  Receipt Date: 20180619
  Transmission Date: 20180711
  Serious: Yes (Hospitalization)
  Sender: FDA-Public Use
  Company Number: DE-TEVA-2018-DE-908435

PATIENT
  Age: 69 Year
  Sex: Male

DRUGS (11)
  1. CIPRAMIL 20MG [Suspect]
     Active Substance: CITALOPRAM HYDROBROMIDE
  2. FLUOROURACIL. [Suspect]
     Active Substance: FLUOROURACIL
     Route: 065
  3. METFORMIN [Concomitant]
     Active Substance: METFORMIN HYDROCHLORIDE
  4. PANTOPRAZOL [Concomitant]
     Active Substance: PANTOPRAZOLE SODIUM
  5. METOCLOPRAMIDE. [Suspect]
     Active Substance: METOCLOPRAMIDE
  6. METOPROLOL. [Suspect]
     Active Substance: METOPROLOL
  7. OXALIPLATIN. [Suspect]
     Active Substance: OXALIPLATIN
     Route: 065
  8. AMLODIPINE [Suspect]
     Active Substance: AMLODIPINE BESYLATE
  9. LATANOPROST. [Concomitant]
     Active Substance: LATANOPROST
  10. SITAGLIPTIN [Concomitant]
     Active Substance: SITAGLIPTIN
  11. RAMIPRIL. [Suspect]
     Active Substance: RAMIPRIL

REACTIONS (4)
  - Dizziness [Unknown]
  - Gait inability [Unknown]
  - General physical health deterioration [Unknown]
  - Asthenia [Unknown]
